FAERS Safety Report 18344175 (Version 1)
Quarter: 2020Q4

REPORT INFORMATION
  Report Type: Spontaneous
  Country: US (occurrence: US)
  Receive Date: 20201005
  Receipt Date: 20201005
  Transmission Date: 20210114
  Serious: Yes (Life-Threatening)
  Sender: FDA-Public Use
  Company Number: None

PATIENT
  Age: 15 Year
  Sex: Male

DRUGS (2)
  1. SYNTOCINON [Suspect]
     Active Substance: OXYTOCIN
     Indication: INDUCED LABOUR
     Dates: start: 20021223
  2. ALBUTEROL. [Suspect]
     Active Substance: ALBUTEROL

REACTIONS (3)
  - Recalled product [None]
  - Respiratory disorder [None]
  - Arrhythmia [None]

NARRATIVE: CASE EVENT DATE: 20181018
